FAERS Safety Report 14771263 (Version 1)
Quarter: 2018Q2

REPORT INFORMATION
  Report Type: Spontaneous
  Country: US (occurrence: US)
  Receive Date: 20180417
  Receipt Date: 20180417
  Transmission Date: 20180711
  Serious: No
  Sender: FDA-Public Use
  Company Number: US-ALLERGAN-1749083US

PATIENT
  Sex: Female

DRUGS (1)
  1. LATISSE [Suspect]
     Active Substance: BIMATOPROST
     Indication: PRODUCT USED FOR UNKNOWN INDICATION
     Dosage: UNK UNK, QHS
     Route: 061
     Dates: start: 2011

REACTIONS (4)
  - Hormone level abnormal [Unknown]
  - Eyelid ptosis [Unknown]
  - Eyelid oedema [Unknown]
  - Drug ineffective [Unknown]

NARRATIVE: CASE EVENT DATE: 2017
